FAERS Safety Report 18769364 (Version 1)
Quarter: 2021Q1

REPORT INFORMATION
  Report Type: Spontaneous
  Country: US (occurrence: US)
  Receive Date: 20210121
  Receipt Date: 20210121
  Transmission Date: 20210419
  Serious: No
  Sender: FDA-Public Use
  Company Number: US-BAYER-2020-277179

PATIENT
  Age: 34 Year
  Sex: Male

DRUGS (1)
  1. KOGENATE FS [Suspect]
     Active Substance: ANTIHEMOPHILIC FACTOR, HUMAN RECOMBINANT
     Dosage: 5000 IU
     Route: 042
     Dates: start: 20201210

REACTIONS (2)
  - Arthralgia [None]
  - Joint swelling [Unknown]

NARRATIVE: CASE EVENT DATE: 20201210
